FAERS Safety Report 7466262-1 (Version None)
Quarter: 2011Q2

REPORT INFORMATION
  Report Type: 
  Country: None (occurrence: None)
  Receive Date: 20110509
  Receipt Date: 20100707
  Transmission Date: 20111010
  Serious: No
  Sender: FDA-Public Use
  Company Number: US-ALEXION-A201000794

PATIENT
  Sex: Male

DRUGS (7)
  1. COUMADIN [Concomitant]
     Dosage: 5 MG, QD
     Route: 048
  2. FERROUS SULFATE TAB [Concomitant]
     Dosage: 325 MG, TID
     Route: 048
  3. PRILOSEC [Concomitant]
     Dosage: 20 MG, QD
     Route: 048
  4. FOLIC ACID [Concomitant]
     Dosage: 1 MG, QD
     Route: 048
  5. SOLIRIS [Suspect]
     Indication: PAROXYSMAL NOCTURNAL HAEMOGLOBINURIA
     Dosage: 600 MG, QW
     Route: 042
     Dates: start: 20100706
  6. LASIX [Concomitant]
     Dosage: 40 MG, BID
     Route: 048
  7. ALDACTONE [Concomitant]
     Dosage: 100 MG, BID
     Route: 048

REACTIONS (1)
  - HYPOAESTHESIA [None]
